FAERS Safety Report 10658417 (Version 2)
Quarter: 2015Q1

REPORT INFORMATION
  Report Type: Report from Study
  Country: US (occurrence: US)
  Receive Date: 20141217
  Receipt Date: 20150324
  Transmission Date: 20150720
  Serious: Yes (Hospitalization, Other)
  Sender: FDA-Public Use
  Company Number: US-RB PHARMACEUTICALS LIMITED-RB-74199-2014

PATIENT
  Age: 42 Year
  Sex: Male

DRUGS (3)
  1. SUBOXONE [Suspect]
     Active Substance: BUPRENORPHINE HYDROCHLORIDE\NALOXONE HYDROCHLORIDE
     Indication: DRUG DEPENDENCE
     Dosage: 2 MG, BID
     Route: 060
  2. SUBOXONE [Suspect]
     Active Substance: BUPRENORPHINE HYDROCHLORIDE\NALOXONE HYDROCHLORIDE
     Indication: DRUG DEPENDENCE
     Dosage: UNK
     Route: 065
  3. SUBOXONE [Suspect]
     Active Substance: BUPRENORPHINE HYDROCHLORIDE\NALOXONE HYDROCHLORIDE
     Indication: DRUG DEPENDENCE
     Dosage: UNK
     Route: 060
     Dates: start: 2011

REACTIONS (6)
  - Arthropathy [Recovered/Resolved]
  - Mass [Not Recovered/Not Resolved]
  - Drug dependence [Not Recovered/Not Resolved]
  - Anger [Unknown]
  - Intentional product misuse [Not Recovered/Not Resolved]
  - Nausea [Recovered/Resolved]

NARRATIVE: CASE EVENT DATE: 2011
